FAERS Safety Report 4417733-3 (Version None)
Quarter: 2004Q3

REPORT INFORMATION
  Report Type: 
  Country: None (occurrence: None)
  Receive Date: 20040803
  Receipt Date: 20040721
  Transmission Date: 20050211
  Serious: Yes (Hospitalization)
  Sender: FDA-Public Use
  Company Number: 2004031828

PATIENT
  Age: 68 Year
  Sex: Male
  Weight: 86 kg

DRUGS (13)
  1. ATORVASTATIN CALCIUM [Suspect]
     Indication: ILL-DEFINED DISORDER
     Dosage: 20 MG (20 MG, 1 IN 1 D), ORAL
     Route: 048
     Dates: end: 20040401
  2. CARVEDILOL [Suspect]
     Indication: ILL-DEFINED DISORDER
     Dosage: 50 MG (25 MG, 2 IN 1 D), ORAL
     Route: 048
     Dates: end: 20040401
  3. RISPERDAL [Suspect]
     Indication: ILL-DEFINED DISORDER
     Dosage: 1 MG (1 MG, 1 IN 1 D), ORAL
     Route: 048
     Dates: end: 20040401
  4. CANDESARTAN CILEXETIL (CANDESARTAN CILEXETIL) [Suspect]
     Indication: ILL-DEFINED DISORDER
     Dosage: 16 MG (8 MG, 2 IN 1 D), ORAL
     Route: 048
     Dates: end: 20040401
  5. MOLSIDOMINE (MOLSIDOMINE) [Suspect]
     Indication: ILL-DEFINED DISORDER
     Dosage: 8 MG (8 MG, 1 IN 1 D), ORAL
     Route: 048
     Dates: end: 20040401
  6. ZOPICLONE (ZOPICLONE) [Suspect]
     Indication: ILL-DEFINED DISORDER
     Dosage: 7.5 MG (7.5 MG), ORAL
     Route: 048
     Dates: end: 20040401
  7. ISOSORBIDE DINITRATE [Concomitant]
  8. MOXONIDINE (MOXONIDINE) [Concomitant]
  9. ACETYLSALICYLIC ACID SRT [Concomitant]
  10. INSULIN HUMAN INJECTION, ISOPHANE (INSULIN HUMAN INJECTION, ISOPHANE) [Concomitant]
  11. PIPAMPERONE (PIPAMPERONE) [Concomitant]
  12. DIAZEPAM [Concomitant]
  13. METAMIZOLE SODIUM (METAMIZOLE SODIUM) [Concomitant]

REACTIONS (10)
  - ASTHENIA [None]
  - CIRCADIAN RHYTHM SLEEP DISORDER [None]
  - CONFUSIONAL STATE [None]
  - FAECAL INCONTINENCE [None]
  - MENTAL DISORDER [None]
  - MYALGIA [None]
  - NERVOUS SYSTEM DISORDER [None]
  - RESTLESSNESS [None]
  - SLEEP DISORDER [None]
  - URINARY INCONTINENCE [None]
